FAERS Safety Report 9396921 (Version 1)
Quarter: 2013Q3

REPORT INFORMATION
  Report Type: Spontaneous
  Country: US (occurrence: None)
  Receive Date: 20130710
  Receipt Date: 20130710
  Transmission Date: 20140515
  Serious: Yes (Hospitalization)
  Sender: FDA-Public Use
  Company Number: None

PATIENT
  Age: 60 Year
  Sex: Male
  Weight: 95.9 kg

DRUGS (2)
  1. BOCEPREVIR [Suspect]
     Indication: HEPATITIS C
     Route: 048
     Dates: start: 20121207, end: 20130708
  2. PEGINTERFERON [Suspect]
     Indication: HEPATITIS C
     Dates: start: 20121109, end: 20130705

REACTIONS (3)
  - Hepatic encephalopathy [None]
  - Loss of consciousness [None]
  - Gait disturbance [None]
